FAERS Safety Report 20802864 (Version 8)
Quarter: 2025Q3

REPORT INFORMATION
  Report Type: Spontaneous
  Country: US (occurrence: US)
  Receive Date: 20220509
  Receipt Date: 20250729
  Transmission Date: 20251020
  Serious: Yes (Hospitalization, Other)
  Sender: PFIZER
  Company Number: US-PFIZER INC-202200676649

PATIENT
  Age: 73 Year
  Sex: Female

DRUGS (2)
  1. VYNDAMAX [Suspect]
     Active Substance: TAFAMIDIS
     Indication: Acquired ATTR amyloidosis
     Dosage: 61 MG, 1X/DAY
     Dates: start: 20220428
  2. VYNDAMAX [Suspect]
     Active Substance: TAFAMIDIS
     Dates: start: 20250217

REACTIONS (15)
  - Atrial fibrillation [Unknown]
  - Hyperhidrosis [Unknown]
  - Dizziness [Unknown]
  - Rash [Unknown]
  - Diarrhoea [Unknown]
  - Gait disturbance [Unknown]
  - Product dose omission in error [Unknown]
  - Chest discomfort [Unknown]
  - Headache [Unknown]
  - Rash [Unknown]
  - Asthenia [Not Recovered/Not Resolved]
  - Fatigue [Not Recovered/Not Resolved]
  - Hypoacusis [Unknown]
  - Back pain [Unknown]
  - Pruritus [Unknown]

NARRATIVE: CASE EVENT DATE: 20250102
